FAERS Safety Report 5958883-X (Version None)
Quarter: 2008Q4

REPORT INFORMATION
  Report Type: 
  Country: None (occurrence: None)
  Receive Date: 20081118
  Receipt Date: 20081103
  Transmission Date: 20090506
  Serious: Yes (Hospitalization)
  Sender: FDA-Public Use
  Company Number: 2008S1019713

PATIENT
  Age: 20 Year
  Sex: Male

DRUGS (4)
  1. DEXTROMETHORPHAN HYDROBROMIDE [Suspect]
     Indication: INTENTIONAL OVERDOSE
  2. ESCITALOPRAM OXALATE [Suspect]
  3. BENZATROPINE [Concomitant]
  4. ARIPIPRAZOLE [Concomitant]

REACTIONS (3)
  - BLOOD GLUCOSE DECREASED [None]
  - MULTIPLE DRUG OVERDOSE INTENTIONAL [None]
  - SEROTONIN SYNDROME [None]
